FAERS Safety Report 10520135 (Version 1)
Quarter: 2014Q4

REPORT INFORMATION
  Report Type: Other
  Country: IT (occurrence: IT)
  Receive Date: 20141015
  Receipt Date: 20141015
  Transmission Date: 20150528
  Serious: Yes (Hospitalization)
  Sender: FDA-Public Use
  Company Number: IT-ENDO PHARMACEUTICALS INC-AMOX20140003

PATIENT
  Age: 6 Year
  Sex: Female

DRUGS (3)
  1. AMOXICILLIN ORAL SUSPENSION [Suspect]
     Active Substance: AMOXICILLIN
     Indication: PRODUCT USED FOR UNKNOWN INDICATION
     Dosage: UNKNOWN
     Route: 048
  2. AMOXICILLIN ORAL SUSPENSION [Suspect]
     Active Substance: AMOXICILLIN
     Dosage: UNKNOWN
     Route: 048
  3. AMOXICILLIN ORAL SUSPENSION [Suspect]
     Active Substance: AMOXICILLIN
     Dosage: UNKNOWN
     Route: 048

REACTIONS (11)
  - Enterocolitis [Recovered/Resolved]
  - Diarrhoea [None]
  - Vomiting [None]
  - Drug hypersensitivity [None]
  - Rash morbilliform [None]
  - Blood pressure decreased [None]
  - Heart rate increased [None]
  - Respiratory rate increased [None]
  - Pallor [None]
  - Hypotension [None]
  - Lethargy [None]
